FAERS Safety Report 11362857 (Version 5)
Quarter: 2016Q2

REPORT INFORMATION
  Report Type: Spontaneous
  Country: US (occurrence: US)
  Receive Date: 20150807
  Receipt Date: 20160614
  Transmission Date: 20160815
  Serious: Yes (Hospitalization, Other)
  Sender: FDA-Public Use
  Company Number: ADR-2015-01482

PATIENT
  Age: 49 Year
  Sex: Male

DRUGS (4)
  1. COMPOUNDED BACLOFEN [Suspect]
     Active Substance: BACLOFEN
     Dosage: 470 MCG/DAY
     Route: 037
     Dates: start: 20121016
  2. LIORESAL [Suspect]
     Active Substance: BACLOFEN
     Dosage: 10 MG
     Route: 065
  3. GLUCOPHAGE [Suspect]
     Active Substance: METFORMIN HYDROCHLORIDE
     Route: 065
  4. COMPOUNDED BACLOFEN [Suspect]
     Active Substance: BACLOFEN
     Dosage: 23 MCG/DAY
     Route: 037

REACTIONS (8)
  - Pocket erosion [Unknown]
  - Discomfort [Unknown]
  - Medical device site fibrosis [Unknown]
  - Medical device site erythema [Unknown]
  - Medical device site infection [Unknown]
  - Medical device site warmth [Unknown]
  - Medical device site vesicles [Unknown]
  - Medical device site bruise [Unknown]

NARRATIVE: CASE EVENT DATE: 20150204
